FAERS Safety Report 13149120 (Version 1)
Quarter: 2017Q1

REPORT INFORMATION
  Report Type: Not Available
  Country: None (occurrence: US)
  Receive Date: 20170125
  Receipt Date: 20170125
  Transmission Date: 20170428
  Serious: No
  Sender: FDA-Public Use
  Company Number: US-AKORN-47810

PATIENT
  Sex: Male

DRUGS (1)
  1. OFLOXACIN 0.3% (3 MG/ML [Suspect]
     Active Substance: OFLOXACIN

REACTIONS (7)
  - Eye pruritus [Unknown]
  - Chemical eye injury [None]
  - Eye pain [None]
  - Eye burns [None]
  - Vision blurred [None]
  - Corneal abrasion [None]
  - Photophobia [None]
